FAERS Safety Report 9245401 (Version 1)
Quarter: 2013Q1

REPORT INFORMATION
  Report Type: Spontaneous
  Country: US (occurrence: None)
  Receive Date: 20121123
  Receipt Date: 20121123
  Transmission Date: 20140127
  Serious: No
  Sender: FDA-Public Use
  Company Number: 358447

PATIENT
  Sex: Male

DRUGS (3)
  1. VICTOZA (LIRAGLUTIDE) SOLUTION FOR INJECTION, 6MG/ML [Suspect]
     Indication: PRODUCT USED FOR UNKNOWN INDICATION
     Dosage: SUBCUTANEOUS
  2. TRAMADOL (TRAMADOL) [Suspect]
     Dosage: ORAL
  3. FLEXERIL [Suspect]
     Dosage: ORAL

REACTIONS (4)
  - Hypersensitivity [None]
  - Vomiting [None]
  - Nausea [None]
  - Diarrhoea [None]
